FAERS Safety Report 9723130 (Version 1)
Quarter: 2013Q4

REPORT INFORMATION
  Report Type: Spontaneous
  Country: US (occurrence: None)
  Receive Date: 20131127
  Receipt Date: 20131127
  Transmission Date: 20140711
  Serious: Yes (Other)
  Sender: FDA-Public Use
  Company Number: None

PATIENT
  Age: 41 Year
  Sex: Female
  Weight: 58.97 kg

DRUGS (1)
  1. LEVAQUIN [Suspect]
     Indication: SINUSITIS
     Route: 048
     Dates: start: 20131111, end: 20131116

REACTIONS (8)
  - Dizziness [None]
  - Thirst [None]
  - Pollakiuria [None]
  - Muscle twitching [None]
  - Musculoskeletal stiffness [None]
  - Influenza [None]
  - Hypoaesthesia [None]
  - Hypertension [None]
